FAERS Safety Report 6580512-5 (Version None)
Quarter: 2010Q1

REPORT INFORMATION
  Report Type: 
  Country: None (occurrence: None)
  Receive Date: 20100212
  Receipt Date: 20091005
  Transmission Date: 20100710
  Serious: No
  Sender: FDA-Public Use
  Company Number: US-BRISTOL-MYERS SQUIBB COMPANY-14808927

PATIENT
  Age: 54 Year
  Sex: Female

DRUGS (1)
  1. AZACTAM [Suspect]
     Indication: SPINAL CORD INFECTION
     Dosage: THERAPY STARTED ON 11 OR 12-AUG-2009.
     Route: 042
     Dates: start: 20090801, end: 20090923

REACTIONS (4)
  - AGEUSIA [None]
  - DECREASED APPETITE [None]
  - DYSGEUSIA [None]
  - WEIGHT DECREASED [None]
